FAERS Safety Report 6775083-4 (Version None)
Quarter: 2010Q2

REPORT INFORMATION
  Report Type: 
  Country: None (occurrence: None)
  Receive Date: 20100617
  Receipt Date: 20100609
  Transmission Date: 20101027
  Serious: Yes (Hospitalization)
  Sender: FDA-Public Use
  Company Number: B0659752A

PATIENT
  Sex: Male

DRUGS (7)
  1. FORTUM [Suspect]
     Route: 042
     Dates: start: 20100224, end: 20100309
  2. COLYMYCIN [Concomitant]
     Route: 065
     Dates: start: 20100211, end: 20100224
  3. LOVENOX [Concomitant]
     Route: 065
     Dates: start: 20100220, end: 20100225
  4. ATARAX [Concomitant]
     Route: 065
     Dates: start: 20100221, end: 20100227
  5. ULTIVA [Concomitant]
     Route: 065
     Dates: start: 20100216, end: 20100305
  6. NORADRENALINE [Concomitant]
     Route: 065
     Dates: start: 20100422, end: 20100428
  7. HEMODIALYSIS [Concomitant]
     Dates: start: 20100202, end: 20100220

REACTIONS (4)
  - DEPRESSED LEVEL OF CONSCIOUSNESS [None]
  - DYSKINESIA [None]
  - ELECTROENCEPHALOGRAM ABNORMAL [None]
  - ENCEPHALOPATHY [None]
